FAERS Safety Report 4967875-9 (Version None)
Quarter: 2006Q2

REPORT INFORMATION
  Report Type: 
  Country: None (occurrence: None)
  Receive Date: 20060410
  Receipt Date: 20051004
  Transmission Date: 20061013
  Serious: Yes (Death, Other)
  Sender: FDA-Public Use
  Company Number: US-MERCK-0510USA03790

PATIENT
  Age: 74 Year
  Sex: Female
  Weight: 43 kg

DRUGS (1)
  1. VIOXX [Suspect]
     Indication: BACK PAIN
     Route: 048
     Dates: start: 20000905, end: 20020907

REACTIONS (9)
  - CEREBROVASCULAR ACCIDENT [None]
  - DEATH [None]
  - GASTRIC HAEMORRHAGE [None]
  - INTERMITTENT CLAUDICATION [None]
  - MENTAL STATUS CHANGES [None]
  - MYOCARDIAL INFARCTION [None]
  - PERIPHERAL VASCULAR DISORDER [None]
  - POLYTRAUMATISM [None]
  - RENAL FAILURE [None]
